FAERS Safety Report 6088491-4 (Version None)
Quarter: 2009Q1

REPORT INFORMATION
  Report Type: 
  Country: None (occurrence: None)
  Receive Date: 20090224
  Receipt Date: 20090212
  Transmission Date: 20090719
  Serious: Yes (Life-Threatening, Hospitalization)
  Sender: FDA-Public Use
  Company Number: JP-JNJFOC-20081203493

PATIENT
  Sex: Male
  Weight: 75 kg

DRUGS (16)
  1. REMICADE [Suspect]
     Route: 042
  2. REMICADE [Suspect]
     Indication: BEHCET'S SYNDROME
     Route: 042
  3. PREDNISOLONE [Suspect]
     Dosage: INTRAVENOUS ADMINISTRATION
  4. PREDNISOLONE [Suspect]
     Dosage: INTRAVENOUS ADMINISTRATION
  5. PREDNISOLONE [Suspect]
  6. PREDNISOLONE [Suspect]
     Dosage: INTRAVENOUS ADMINISTRATION
  7. PREDNISOLONE [Suspect]
     Dosage: ORAL ADMINISTRATION; DOSE ^35-20 MG^
  8. PREDNISOLONE [Suspect]
     Dosage: ORAL ADMINISTRATION
  9. PREDNISOLONE [Suspect]
     Indication: DRUG USE FOR UNKNOWN INDICATION
     Dosage: ORAL ADMINISTRATION
  10. IMURAN [Suspect]
     Indication: DRUG USE FOR UNKNOWN INDICATION
     Route: 048
  11. COLCHICINE [Concomitant]
     Indication: BEHCET'S SYNDROME
     Route: 048
  12. MIYA BM [Concomitant]
     Route: 048
  13. PENTASA [Concomitant]
     Route: 048
  14. ONEALFA [Concomitant]
     Dosage: DOSE REPORTED AS ^0.5 RG^
     Route: 048
  15. TAKEPRON [Concomitant]
     Route: 048
  16. KAKKON-TO [Concomitant]
     Route: 048

REACTIONS (2)
  - INTERSTITIAL LUNG DISEASE [None]
  - PNEUMOCYSTIS JIROVECI PNEUMONIA [None]
